FAERS Safety Report 6422179-2 (Version None)
Quarter: 2009Q4

REPORT INFORMATION
  Report Type: 
  Country: None (occurrence: None)
  Receive Date: 20091030
  Receipt Date: 20091022
  Transmission Date: 20100525
  Serious: Yes (Hospitalization)
  Sender: FDA-Public Use
  Company Number: PHHO2009DE13405

PATIENT
  Sex: Male
  Weight: 100 kg

DRUGS (4)
  1. NO TREATMENT RECEIVED NOMED [Suspect]
     Dosage: NO TREATMENT
  2. SANDIMMUNE [Suspect]
     Indication: RENAL TRANSPLANT
     Dosage: 160G
     Route: 048
  3. MYFORTIC [Suspect]
     Indication: RENAL TRANSPLANT
     Dosage: 360MG
     Route: 048
  4. URBASON [Suspect]
     Indication: RENAL TRANSPLANT
     Dosage: 4MG
     Route: 048

REACTIONS (3)
  - NEPHROPATHY TOXIC [None]
  - RENAL IMPAIRMENT [None]
  - THERAPEUTIC AGENT TOXICITY [None]
